FAERS Safety Report 23140446 (Version 2)
Quarter: 2024Q1

REPORT INFORMATION
  Report Type: Spontaneous
  Country: JP (occurrence: JP)
  Receive Date: 20231102
  Receipt Date: 20240129
  Transmission Date: 20240409
  Serious: Yes (Hospitalization)
  Sender: FDA-Public Use
  Company Number: JP-KYOWAKIRIN-2023KK017016

PATIENT

DRUGS (1)
  1. ROMIPLOSTIM [Suspect]
     Active Substance: ROMIPLOSTIM
     Indication: Product used for unknown indication
     Dosage: UNK, 1X/WEEK
     Route: 058

REACTIONS (1)
  - Hospitalisation [Unknown]
